FAERS Safety Report 20055281 (Version 1)
Quarter: 2021Q4

REPORT INFORMATION
  Report Type: Spontaneous
  Country: FR (occurrence: FR)
  Receive Date: 20211110
  Receipt Date: 20211110
  Transmission Date: 20220303
  Serious: Yes (Other)
  Sender: FDA-Public Use
  Company Number: None

PATIENT
  Age: 74 Year
  Sex: Female

DRUGS (6)
  1. CYMBALTA [Suspect]
     Active Substance: DULOXETINE HYDROCHLORIDE
     Indication: Depression
     Dosage: 30 MG, DAILY
     Route: 048
     Dates: start: 20210801
  2. RAMIPRIL [Suspect]
     Active Substance: RAMIPRIL
     Indication: Ischaemic heart disease prophylaxis
     Dosage: 1.25 MG, DAILY
     Route: 048
     Dates: start: 20210810
  3. EXELON [Suspect]
     Active Substance: RIVASTIGMINE TARTRATE
     Indication: Parkinson^s disease
     Dosage: 9 MG, DAILY
     Route: 048
     Dates: start: 20210810
  4. LEVOTHYROXINE SODIUM [Concomitant]
     Active Substance: LEVOTHYROXINE SODIUM
     Indication: Hypothyroidism
     Dosage: UNK, DAILY
     Route: 048
     Dates: start: 19900101
  5. KARDEGIC [Concomitant]
     Active Substance: ASPIRIN DL-LYSINE
     Indication: Ischaemic heart disease prophylaxis
     Dosage: UNK UNK, DAILY
     Route: 048
     Dates: start: 20210201
  6. BENSERAZIDE HYDROCHLORIDE\LEVODOPA [Concomitant]
     Active Substance: BENSERAZIDE HYDROCHLORIDE\LEVODOPA
     Indication: Parkinson^s disease
     Dosage: 125 MG, BID
     Route: 048
     Dates: start: 20180101

REACTIONS (1)
  - Renal impairment [Not Recovered/Not Resolved]

NARRATIVE: CASE EVENT DATE: 20211007
